FAERS Safety Report 12940557 (Version 3)
Quarter: 2018Q3

REPORT INFORMATION
  Report Type: Spontaneous
  Country: DK (occurrence: DK)
  Receive Date: 20161115
  Receipt Date: 20180813
  Transmission Date: 20181010
  Serious: Yes (Hospitalization)
  Sender: FDA-Public Use
  Company Number: PHHY2016DK154258

PATIENT
  Sex: Female
  Weight: 91 kg

DRUGS (5)
  1. XGEVA [Suspect]
     Active Substance: DENOSUMAB
     Indication: METASTASES TO BONE
     Dosage: 120 MG, EVERY 4 WEEK
     Route: 058
     Dates: start: 20140701
  2. BONDRONAT [Suspect]
     Active Substance: IBANDRONATE SODIUM
     Indication: METASTASES TO BONE
     Dosage: 50 MG, QD (1 TABLET 1 TIME)
     Route: 048
     Dates: start: 20110606, end: 20110606
  3. LOSARTAN. [Concomitant]
     Active Substance: LOSARTAN
     Indication: HYPERTENSION
     Dosage: UNK
     Route: 065
  4. TAMOXIFEN [Concomitant]
     Active Substance: TAMOXIFEN
     Indication: BREAST CANCER
     Dosage: UNK
     Route: 065
  5. ZOMETA [Suspect]
     Active Substance: ZOLEDRONIC ACID
     Indication: METASTASES TO BONE
     Dosage: 4 MG, EVERY 3 TO 4 WEEK
     Route: 041
     Dates: start: 20110616, end: 201407

REACTIONS (5)
  - Oral pustule [Recovered/Resolved]
  - Swelling [Recovered/Resolved]
  - Exposed bone in jaw [Recovered/Resolved]
  - Osteonecrosis of jaw [Recovered/Resolved]
  - Erythema [Recovered/Resolved]

NARRATIVE: CASE EVENT DATE: 2016
